FAERS Safety Report 8845076 (Version 1)
Quarter: 2012Q4

REPORT INFORMATION
  Report Type: Spontaneous
  Country: US (occurrence: None)
  Receive Date: 20121002
  Receipt Date: 20121002
  Transmission Date: 20130627
  Serious: Yes (Hospitalization, Other)
  Sender: FDA-Public Use
  Company Number: RB-37833-2012

PATIENT
  Age: 47 Year
  Sex: Female

DRUGS (2)
  1. SUBOXONE [Suspect]
     Indication: PRODUCT USED FOR UNKNOWN INDICATION
  2. TRILEPTAL [Suspect]
     Indication: PRODUCT USED FOR UNKNOWN INDICATION

REACTIONS (10)
  - Respiratory tract infection [None]
  - Ear infection [None]
  - Underdose [None]
  - Drug withdrawal syndrome [None]
  - Anxiety [None]
  - Diarrhoea [None]
  - Decreased appetite [None]
  - Insomnia [None]
  - Tremor [None]
  - Depression [None]
